FAERS Safety Report 16662604 (Version 2)
Quarter: 2020Q1

REPORT INFORMATION
  Report Type: Report from Study
  Country: US (occurrence: US)
  Receive Date: 20190802
  Receipt Date: 20200129
  Transmission Date: 20200409
  Serious: No
  Sender: FDA-Public Use
  Company Number: US-EXELIXIS-CABO-19018771

PATIENT
  Age: 13 Year
  Sex: Female

DRUGS (5)
  1. CABOMETYX [Suspect]
     Active Substance: CABOZANTINIB S-MALATE
     Indication: SOFT TISSUE SARCOMA
  2. IBUPROFEN. [Concomitant]
     Active Substance: IBUPROFEN
  3. PERCOCET [Concomitant]
     Active Substance: ACETAMINOPHEN\OXYCODONE HYDROCHLORIDE
  4. EMLA [Concomitant]
     Active Substance: LIDOCAINE\PRILOCAINE
  5. CABOMETYX [Suspect]
     Active Substance: CABOZANTINIB S-MALATE
     Indication: MALIGNANT CONNECTIVE TISSUE NEOPLASM
     Dosage: 80 MG, QD
     Route: 048
     Dates: start: 20181130

REACTIONS (3)
  - Off label use [Unknown]
  - Skin discolouration [Unknown]
  - Hair colour changes [Unknown]

NARRATIVE: CASE EVENT DATE: 20181231
